FAERS Safety Report 20478831 (Version 5)
Quarter: 2022Q2

REPORT INFORMATION
  Report Type: Report from Study
  Country: BR (occurrence: BR)
  Receive Date: 20220216
  Receipt Date: 20220406
  Transmission Date: 20220720
  Serious: Yes (Hospitalization, Other)
  Sender: FDA-Public Use
  Company Number: BR-NOVARTISPH-NVSC2021BR268456

PATIENT
  Age: 42 Year
  Sex: Female

DRUGS (5)
  1. PIQRAY [Suspect]
     Active Substance: ALPELISIB
     Indication: Breast cancer metastatic
     Dosage: 150 MG
     Route: 065
     Dates: start: 20211105, end: 20211121
  2. PIQRAY [Suspect]
     Active Substance: ALPELISIB
     Indication: Breast neoplasm
     Dosage: 300 MG, (BY THE DAY) (STOP AFTER 10 DAYS)
     Route: 065
     Dates: start: 20211105, end: 20211121
  3. PIQRAY [Suspect]
     Active Substance: ALPELISIB
     Dosage: 200 MG, QD
     Route: 065
  4. PIQRAY [Suspect]
     Active Substance: ALPELISIB
     Dosage: 30 MG, Q12H
     Route: 065
     Dates: start: 20211105
  5. FULVESTRANT [Concomitant]
     Active Substance: FULVESTRANT
     Indication: Breast neoplasm
     Dosage: 1000 MG
     Route: 065

REACTIONS (28)
  - Hypersensitivity [Recovered/Resolved]
  - Rash [Recovered/Resolved]
  - Genital rash [Recovered/Resolved]
  - Oral mucosal blistering [Recovered/Resolved]
  - Oral disorder [Recovered/Resolved]
  - Breast mass [Unknown]
  - Gastrointestinal disorder [Not Recovered/Not Resolved]
  - Oral mucosal eruption [Recovered/Resolved]
  - Lip discolouration [Recovered/Resolved]
  - Dry throat [Not Recovered/Not Resolved]
  - Skin discolouration [Recovered/Resolved]
  - Swollen tongue [Recovered/Resolved]
  - Vaginal lesion [Recovered/Resolved]
  - Skin lesion [Recovering/Resolving]
  - Skin abrasion [Unknown]
  - Vulvovaginal swelling [Recovered/Resolved]
  - Blister [Recovering/Resolving]
  - Dry skin [Not Recovered/Not Resolved]
  - Mucosal dryness [Recovered/Resolved]
  - Blood glucose increased [Unknown]
  - Pruritus [Recovered/Resolved]
  - Dry mouth [Not Recovered/Not Resolved]
  - Drug effect less than expected [Unknown]
  - Skin fissures [Unknown]
  - Thirst [Not Recovered/Not Resolved]
  - Stress [Unknown]
  - Dyspepsia [Unknown]
  - Nausea [Unknown]

NARRATIVE: CASE EVENT DATE: 20211114
